FAERS Safety Report 10697227 (Version 1)
Quarter: 2015Q1

REPORT INFORMATION
  Report Type: Spontaneous
  Country: LU (occurrence: BE)
  Receive Date: 20150108
  Receipt Date: 20150108
  Transmission Date: 20150721
  Serious: Yes (Other)
  Sender: FDA-Public Use
  Company Number: LU-AMGEN-BELSP2015000914

PATIENT

DRUGS (1)
  1. PROLIA [Suspect]
     Active Substance: DENOSUMAB
     Indication: PRODUCT USED FOR UNKNOWN INDICATION
     Route: 065

REACTIONS (2)
  - Dialysis [Unknown]
  - Hyperparathyroidism secondary [Unknown]
